FAERS Safety Report 5578726-6 (Version None)
Quarter: 2008Q1

REPORT INFORMATION
  Report Type: 
  Country: None (occurrence: None)
  Receive Date: 20080102
  Receipt Date: 20071222
  Transmission Date: 20080703
  Serious: Yes (Hospitalization)
  Sender: FDA-Public Use
  Company Number: BE-WYE-H01874307

PATIENT
  Sex: Male
  Weight: 64 kg

DRUGS (9)
  1. NEORAL [Suspect]
     Indication: PROPHYLAXIS AGAINST TRANSPLANT REJECTION
     Route: 048
  2. AMLODIPINE BESYLATE [Concomitant]
     Route: 048
  3. EMCONCOR [Concomitant]
     Route: 048
  4. LANTUS [Concomitant]
     Dosage: 20 E ONCE PER DAY
     Route: 058
  5. MEDROL [Concomitant]
     Route: 048
  6. ZANTAC [Concomitant]
     Route: 048
  7. BEFACT [Concomitant]
     Dosage: 1X/DAY
     Route: 048
  8. CELLCEPT [Concomitant]
     Indication: PROPHYLAXIS AGAINST TRANSPLANT REJECTION
     Route: 048
  9. VITAMIN D3 [Concomitant]
     Dosage: 1000 1X/D
     Route: 048

REACTIONS (1)
  - RENAL FAILURE [None]
